FAERS Safety Report 6103530-X (Version None)
Quarter: 2009Q1

REPORT INFORMATION
  Report Type: 
  Country: None (occurrence: None)
  Receive Date: 20090302
  Receipt Date: 20090217
  Transmission Date: 20090719
  Serious: Yes (Death, Other)
  Sender: FDA-Public Use
  Company Number: A-US2009-23782

PATIENT
  Age: 45 Year
  Sex: Male

DRUGS (1)
  1. TRACLEER [Suspect]
     Indication: PULMONARY ARTERIAL HYPERTENSION
     Dosage: 125 MG, ORAL
     Route: 048
     Dates: start: 20061101

REACTIONS (2)
  - LIVER FUNCTION TEST ABNORMAL [None]
  - TERMINAL STATE [None]
